FAERS Safety Report 8425497-1 (Version None)
Quarter: 2012Q2

REPORT INFORMATION
  Report Type: 
  Country: None (occurrence: None)
  Receive Date: 20120611
  Receipt Date: 20120530
  Transmission Date: 20120825
  Serious: Yes (Hospitalization)
  Sender: FDA-Public Use
  Company Number: US-US-EMD SERONO, INC.-7136929

PATIENT
  Sex: Female

DRUGS (3)
  1. REBIF [Suspect]
     Indication: PRODUCT USED FOR UNKNOWN INDICATION
     Route: 058
     Dates: start: 20100517
  2. REBIF [Suspect]
     Route: 058
  3. REBIF [Suspect]
     Route: 058

REACTIONS (6)
  - PNEUMONIA [None]
  - INFLUENZA [None]
  - COLONIC POLYP [None]
  - VITAMIN B COMPLEX DEFICIENCY [None]
  - ANAEMIA [None]
  - VITAMIN D DECREASED [None]
